FAERS Safety Report 8171158 (Version 2)
Quarter: 2012Q4

REPORT INFORMATION
  Report Type: Report from Study
  Country: BE (occurrence: BE)
  Receive Date: 20111006
  Receipt Date: 20121017
  Transmission Date: 20130627
  Serious: Yes (Hospitalization)
  Sender: FDA-Public Use
  Company Number: BE-GLAXOSMITHKLINE-B0752946A

PATIENT
  Age: 81 Year
  Sex: Female
  Weight: 42 kg

DRUGS (2)
  1. OFATUMUMAB [Suspect]
     Indication: DIFFUSE LARGE B-CELL LYMPHOMA
     Dosage: 1000MG Cyclic
     Route: 065
     Dates: start: 20110817
  2. CHOP [Suspect]
     Indication: DIFFUSE LARGE B-CELL LYMPHOMA
     Route: 065
     Dates: start: 20110817, end: 20110907

REACTIONS (1)
  - Abdominal pain [Recovered/Resolved]
